FAERS Safety Report 6533844-0 (Version None)
Quarter: 2010Q1

REPORT INFORMATION
  Report Type: 
  Country: None (occurrence: None)
  Receive Date: 20100111
  Receipt Date: 20090813
  Transmission Date: 20100710
  Serious: No
  Sender: FDA-Public Use
  Company Number: US-ABBOTT-09P-163-0591896-00

PATIENT
  Sex: Female
  Weight: 63.56 kg

DRUGS (1)
  1. VICODIN [Suspect]
     Indication: BACK PAIN
     Dosage: 5/500 MG PER TAB : TAKES 8 5/500 MG TABS DAILY
     Dates: start: 20090501

REACTIONS (3)
  - BURNING SENSATION [None]
  - DRUG INEFFECTIVE [None]
  - PAIN [None]
